FAERS Safety Report 26157482 (Version 1)
Quarter: 2025Q4

REPORT INFORMATION
  Report Type: Report from Study
  Country: KR (occurrence: KR)
  Receive Date: 20251215
  Receipt Date: 20251215
  Transmission Date: 20260117
  Serious: Yes (Hospitalization)
  Sender: ROCHE
  Company Number: KR-ROCHE-10000460079

PATIENT
  Age: 54 Year
  Sex: Female
  Weight: 84 kg

DRUGS (18)
  1. PHESGO [Suspect]
     Active Substance: HYALURONIDASE-ZZXF\PERTUZUMAB\TRASTUZUMAB
     Indication: HER2 positive breast cancer
     Dosage: 1200/600 MG
     Route: 058
     Dates: start: 20251113, end: 20251113
  2. DOCETAXEL [Suspect]
     Active Substance: DOCETAXEL
     Indication: HER2 positive breast cancer
     Route: 042
     Dates: start: 20251113, end: 20251113
  3. CARBOPLATIN [Suspect]
     Active Substance: CARBOPLATIN
     Indication: HER2 positive breast cancer
     Route: 042
     Dates: start: 20251113, end: 20251113
  4. Fludex SR Tab [Concomitant]
     Indication: Hypertension
     Route: 048
     Dates: start: 2025
  5. Rosuvamibe Tab let 10/5mg [Concomitant]
     Indication: Dyslipidaemia
     Dosage: 10/5 MG
     Route: 048
     Dates: start: 2025, end: 20251118
  6. Esoduo Tab. 40 mg/800mg [Concomitant]
     Dosage: 40/800 MG
     Route: 048
     Dates: start: 2025, end: 20251118
  7. DUALSTAR 40/5 mg [Concomitant]
     Indication: Hypertension
     Dosage: 40/5 MG
     Route: 048
     Dates: start: 2025, end: 20251118
  8. Depas Tab. 0.25 mg [Concomitant]
     Route: 048
     Dates: start: 2025
  9. Lanston LFDT Tab. 15mg (lansoprazole) [Concomitant]
     Route: 048
     Dates: start: 20251112, end: 20251117
  10. Yuhan Dexamethasone Tablet [Concomitant]
     Route: 048
     Dates: start: 20251112, end: 20251115
  11. MACPERAN tablets [Concomitant]
     Route: 048
     Dates: start: 20251112, end: 20251117
  12. MACPERAN tablets [Concomitant]
     Route: 048
     Dates: start: 20251203, end: 20251208
  13. Rolontis Prefilled Syringe Inj. [Concomitant]
     Route: 058
     Dates: start: 20251114, end: 20251114
  14. Telmisylate tab. 40/5mg [Concomitant]
     Indication: Hypertension
     Dosage: 1 TAB
     Route: 048
     Dates: start: 20251119
  15. Crezet Tablet 10/5mg [Concomitant]
     Indication: Dyslipidaemia
     Dosage: 1 TAB
     Route: 048
     Dates: start: 20251120
  16. K-Contin Continus Tab [Concomitant]
     Indication: Hypokalaemia
     Route: 048
     Dates: start: 20251121, end: 20251122
  17. K-Contin Continus Tab [Concomitant]
     Route: 048
     Dates: start: 20251121, end: 20251121
  18. Mucosta Tablets [Concomitant]
     Route: 048
     Dates: start: 20251122, end: 20251201

REACTIONS (2)
  - Hyponatraemia [Recovered/Resolved]
  - Pyrexia [Recovered/Resolved]

NARRATIVE: CASE EVENT DATE: 20251118
